FAERS Safety Report 4936298-0 (Version None)
Quarter: 2006Q1

REPORT INFORMATION
  Report Type: 
  Country: None (occurrence: None)
  Receive Date: 20060127
  Receipt Date: 20051128
  Transmission Date: 20060701
  Serious: Yes (Other)
  Sender: FDA-Public Use
  Company Number: 2005161870

PATIENT
  Age: 76 Year
  Sex: Male
  Weight: 79.3795 kg

DRUGS (11)
  1. LYRICA [Suspect]
     Indication: NEUROPATHY PERIPHERAL
     Dosage: 150 MG (75 MG,2 IN 1 D)
     Dates: start: 20051125, end: 20051126
  2. LYRICA [Suspect]
     Indication: PAIN IN EXTREMITY
     Dosage: 150 MG (75 MG,2 IN 1 D)
     Dates: start: 20051125, end: 20051126
  3. TARKA [Concomitant]
  4. ACIPHEX [Concomitant]
  5. TAMSULOSIN HCL [Concomitant]
  6. ZOCOR [Concomitant]
  7. ACETYLSALICYLIC ACID (ACETYLSALICYCLIC ACID) [Concomitant]
  8. NAMENDA [Concomitant]
  9. DURAGESIC-100 [Concomitant]
  10. PERCOCET [Concomitant]
  11. TYLENOL [Concomitant]

REACTIONS (4)
  - CHEST PAIN [None]
  - HYPERSOMNIA [None]
  - PAIN IN EXTREMITY [None]
  - SOMNOLENCE [None]
